FAERS Safety Report 7229146 (Version 6)
Quarter: 2013Q1

REPORT INFORMATION
  Report Type: Report from Study
  Country: US (occurrence: US)
  Receive Date: 20091223
  Receipt Date: 20130124
  Transmission Date: 20140127
  Serious: Yes (Death, Life-Threatening, Hospitalization)
  Sender: FDA-Public Use
  Company Number: US-BAXTER-2009BH019613

PATIENT
  Age: 77 Year
  Sex: Female
  Weight: 63.6 kg

DRUGS (13)
  1. NAMENDA [Concomitant]
     Indication: DEMENTIA ALZHEIMER^S TYPE
     Route: 048
     Dates: start: 2007
  2. EXELON [Concomitant]
     Indication: DEMENTIA ALZHEIMER^S TYPE
     Route: 061
     Dates: start: 200901, end: 20100128
  3. FISH OIL [Concomitant]
     Indication: DEMENTIA ALZHEIMER^S TYPE
     Route: 048
     Dates: start: 200901
  4. CITALOPRAM [Concomitant]
     Indication: DEPRESSION
     Route: 048
     Dates: start: 200901
  5. PRILOSEC [Concomitant]
     Indication: GASTROOESOPHAGEAL REFLUX DISEASE
     Route: 048
     Dates: start: 2005
  6. CALCIUM [Concomitant]
     Indication: PROPHYLAXIS
     Route: 048
     Dates: start: 1990
  7. CLARITIN [Concomitant]
     Indication: SEASONAL ALLERGY
     Route: 048
     Dates: start: 2007
  8. BENADRYL [Concomitant]
     Indication: INFUSION RELATED REACTION
     Route: 042
     Dates: start: 20091125, end: 20091125
  9. BENADRYL [Concomitant]
     Indication: INFUSION RELATED REACTION
     Route: 048
     Dates: start: 20091209, end: 20091209
  10. TYLENOL [Concomitant]
     Indication: PREMEDICATION
     Route: 048
     Dates: start: 20091209, end: 20091209
  11. LIPITOR [Concomitant]
     Indication: HYPERCHOLESTEROLAEMIA
     Route: 048
     Dates: start: 20091220
  12. GAMMAGARD LIQUID [Suspect]
     Indication: DEMENTIA ALZHEIMER^S TYPE
     Route: 042
     Dates: start: 20091209, end: 20091209
  13. GAMMAGARD LIQUID [Suspect]
     Route: 042
     Dates: start: 20091125

REACTIONS (4)
  - Cardiac failure congestive [Fatal]
  - Myocardial infarction [Fatal]
  - Cardiac failure congestive [Fatal]
  - Aortic stenosis [Fatal]
